FAERS Safety Report 19666972 (Version 1)
Quarter: 2021Q3

REPORT INFORMATION
  Report Type: Spontaneous
  Country: JP (occurrence: JP)
  Receive Date: 20210806
  Receipt Date: 20210806
  Transmission Date: 20211014
  Serious: Yes (Hospitalization)
  Sender: FDA-Public Use
  Company Number: JP-TEVA-2021-JP-003662J

PATIENT
  Age: 6 Year

DRUGS (2)
  1. CARBOCISTEINE SYRUP 5% FOR PEDIATRIC ^TEVA^ [Suspect]
     Active Substance: CARBOCYSTEINE
     Indication: PRODUCT USED FOR UNKNOWN INDICATION
     Route: 048
  2. TRANEXAMIC ACID SYRUP 5% ^TEVA^ [Suspect]
     Active Substance: TRANEXAMIC ACID
     Indication: PRODUCT USED FOR UNKNOWN INDICATION
     Route: 048

REACTIONS (9)
  - Pyrexia [Unknown]
  - Purpura [Unknown]
  - Incorrect dose administered [Unknown]
  - Vomiting [Unknown]
  - Diarrhoea [Unknown]
  - Rash [Not Recovered/Not Resolved]
  - Anaphylactic reaction [Unknown]
  - Wrong technique in product usage process [Unknown]
  - Swelling [Unknown]

NARRATIVE: CASE EVENT DATE: 2021
